FAERS Safety Report 9399232 (Version 1)
Quarter: 2013Q3

REPORT INFORMATION
  Report Type: Spontaneous
  Country: HR (occurrence: HR)
  Receive Date: 20130710
  Receipt Date: 20130710
  Transmission Date: 20140515
  Serious: Yes (Other)
  Sender: FDA-Public Use
  Company Number: HR-1199106

PATIENT
  Age: 56 Year
  Sex: Male
  Weight: 80 kg

DRUGS (1)
  1. TOBREX [Suspect]
     Indication: CONJUNCTIVITIS
     Dosage: OU OPHTHALMIC
     Route: 047
     Dates: start: 20130530, end: 20130601

REACTIONS (2)
  - Eyelid oedema [None]
  - Erythema of eyelid [None]
